FAERS Safety Report 19294577 (Version 1)
Quarter: 2021Q2

REPORT INFORMATION
  Report Type: Spontaneous
  Country: IT (occurrence: IT)
  Receive Date: 20210524
  Receipt Date: 20210524
  Transmission Date: 20210717
  Serious: Yes (Hospitalization)
  Sender: FDA-Public Use
  Company Number: IT-ACCORD-225858

PATIENT
  Age: 29 Year
  Sex: Male

DRUGS (3)
  1. DEPAKIN [Suspect]
     Active Substance: VALPROATE SODIUM
     Route: 048
     Dates: start: 20210314, end: 20210314
  2. DEPAKIN CHRONO [Suspect]
     Active Substance: VALPROIC ACID
     Dosage: 500 MG PROLONGED?RELEASE TABLETS
     Route: 048
     Dates: start: 20210314, end: 20210314
  3. TRAZODONE [Suspect]
     Active Substance: TRAZODONE HYDROCHLORIDE
     Route: 048
     Dates: start: 20210314, end: 20210314

REACTIONS (3)
  - Suicide attempt [Unknown]
  - Sopor [Unknown]
  - Drug abuse [Unknown]

NARRATIVE: CASE EVENT DATE: 20210314
